FAERS Safety Report 8263581-6 (Version None)
Quarter: 2012Q2

REPORT INFORMATION
  Report Type: 
  Country: None (occurrence: None)
  Receive Date: 20120405
  Receipt Date: 20120329
  Transmission Date: 20120825
  Serious: Yes (Hospitalization, Other)
  Sender: FDA-Public Use
  Company Number: BR-ABBOTT-12P-020-0920240-00

PATIENT
  Sex: Female
  Weight: 66.5 kg

DRUGS (6)
  1. HUMIRA [Suspect]
     Indication: CROHN'S DISEASE
     Dosage: INDUCTION DOSE
     Route: 058
     Dates: start: 20120322
  2. HUMIRA [Suspect]
     Route: 058
  3. AZATHIOPRINE [Concomitant]
     Indication: CROHN'S DISEASE
     Dosage: IN THE MORNING
     Route: 048
     Dates: start: 20120322
  4. HUMIRA [Suspect]
     Dosage: INDUCTION DOSE
     Route: 058
  5. LIPANON [Concomitant]
     Indication: BLOOD TRIGLYCERIDES
     Dosage: AFTER DINNER
     Route: 048
  6. INDAPAMIDE [Concomitant]
     Indication: BLOOD PRESSURE MANAGEMENT
     Dosage: AFTER BREAKFAST
     Route: 048

REACTIONS (5)
  - KIDNEY INFECTION [None]
  - NEPHRITIS [None]
  - NAUSEA [None]
  - ABDOMINAL PAIN [None]
  - HYPERHIDROSIS [None]
